FAERS Safety Report 11108812 (Version 1)
Quarter: 2015Q2

REPORT INFORMATION
  Report Type: Spontaneous
  Country: US (occurrence: None)
  Receive Date: 20150511
  Receipt Date: 20150511
  Transmission Date: 20150821
  Serious: No
  Sender: FDA-Public Use
  Company Number: None

PATIENT
  Age: 56 Year
  Sex: Female
  Weight: 99.34 kg

DRUGS (5)
  1. AXERT [Concomitant]
     Active Substance: ALMOTRIPTAN MALATE
  2. ADVAIR HFA [Concomitant]
     Active Substance: FLUTICASONE PROPIONATE\SALMETEROL XINAFOATE
  3. CYCLOBENZAPRINE [Suspect]
     Active Substance: CYCLOBENZAPRINE
     Indication: MUSCLE STRAIN
     Route: 048
     Dates: start: 20150504, end: 20150506
  4. MULTI VITAMINS [Concomitant]
  5. CYCLOBENZAPRINE [Suspect]
     Active Substance: CYCLOBENZAPRINE
     Indication: BACK PAIN
     Route: 048
     Dates: start: 20150504, end: 20150506

REACTIONS (6)
  - Nasal dryness [None]
  - Pyrexia [None]
  - Dry skin [None]
  - Pain [None]
  - Dry mouth [None]
  - Aptyalism [None]

NARRATIVE: CASE EVENT DATE: 20150508
